FAERS Safety Report 4958324-5 (Version None)
Quarter: 2006Q1

REPORT INFORMATION
  Report Type: 
  Country: None (occurrence: None)
  Receive Date: 20060330
  Receipt Date: 20060322
  Transmission Date: 20060701
  Serious: Yes (Death)
  Sender: FDA-Public Use
  Company Number: US-SANOFI-SYNTHELABO-A03200601676

PATIENT
  Sex: Female

DRUGS (10)
  1. PLAVIX [Suspect]
     Indication: DRUG USE FOR UNKNOWN INDICATION
     Dosage: UNK
     Route: 048
  2. METOPROLOL [Concomitant]
     Dosage: UNK
     Route: 065
  3. POTASSIUM [Concomitant]
     Dosage: UNK
     Route: 065
  4. ISOSORBIDE [Concomitant]
     Dosage: UNK
     Route: 065
  5. SYNTHROID [Concomitant]
     Dosage: UNK
     Route: 065
  6. ASPIRIN [Concomitant]
     Dosage: UNK
     Route: 065
  7. NEURONTIN [Concomitant]
     Dosage: UNK
     Route: 065
  8. ACIPHEX [Concomitant]
     Dosage: UNK
     Route: 065
  9. ALBUTEROL [Concomitant]
     Dosage: UNK
     Route: 065
  10. OXYGEN [Concomitant]
     Dosage: UNK
     Route: 065

REACTIONS (1)
  - DEATH [None]
